FAERS Safety Report 23161143 (Version 2)
Quarter: 2023Q4

REPORT INFORMATION
  Report Type: Spontaneous
  Country: JP (occurrence: JP)
  Receive Date: 20231108
  Receipt Date: 20231201
  Transmission Date: 20240110
  Serious: Yes (Other)
  Sender: FDA-Public Use
  Company Number: JP-BAYER-2023A155234

PATIENT
  Age: 87 Year
  Sex: Male

DRUGS (1)
  1. XOFIGO [Suspect]
     Active Substance: RADIUM RA-223 DICHLORIDE
     Indication: Prostate cancer
     Dosage: 55KBQ/KG, EVERY 4 WEEKS
     Dates: start: 20230320, end: 20230710

REACTIONS (2)
  - Gastric cancer [Not Recovered/Not Resolved]
  - Normocytic anaemia [Recovering/Resolving]

NARRATIVE: CASE EVENT DATE: 20230710
